FAERS Safety Report 9248916 (Version 4)
Quarter: 2015Q1

REPORT INFORMATION
  Report Type: Spontaneous
  Country: US (occurrence: US)
  Receive Date: 20130423
  Receipt Date: 20150327
  Transmission Date: 20150721
  Serious: Yes (Disabling, Other)
  Sender: FDA-Public Use
  Company Number: US-009507513-1304USA011006

PATIENT
  Sex: Male

DRUGS (1)
  1. PROPECIA [Suspect]
     Active Substance: FINASTERIDE
     Indication: ANDROGENETIC ALOPECIA
     Dosage: 1 MG, QD
     Route: 048
     Dates: end: 20010701

REACTIONS (52)
  - Genital hypoaesthesia [Unknown]
  - Ejaculation disorder [Unknown]
  - Diabetes mellitus [Unknown]
  - Drug ineffective [Unknown]
  - Night sweats [Unknown]
  - Obesity [Unknown]
  - Disturbance in attention [Not Recovered/Not Resolved]
  - Groin pain [Unknown]
  - Painful ejaculation [Unknown]
  - Erectile dysfunction [Unknown]
  - Breast enlargement [Unknown]
  - Hiatus hernia [Unknown]
  - Hypertension [Unknown]
  - Splenomegaly [Unknown]
  - Hypertrophy [Unknown]
  - Adjustment disorder [Unknown]
  - Anxiety [Not Recovered/Not Resolved]
  - Sexual dysfunction [Not Recovered/Not Resolved]
  - Abdominal pain [Unknown]
  - Hepatic enzyme increased [Unknown]
  - HIV infection [Unknown]
  - Gastritis [Unknown]
  - Depression [Not Recovered/Not Resolved]
  - Testicular pain [Unknown]
  - Foot deformity [Unknown]
  - Encephalopathy [Unknown]
  - Loss of libido [Unknown]
  - Breast pain [Unknown]
  - Non-alcoholic steatohepatitis [Unknown]
  - Thrombocytopenia [Unknown]
  - Drug intolerance [Unknown]
  - Arthralgia [Unknown]
  - Hepatic cirrhosis [Unknown]
  - Portal hypertension [Unknown]
  - Varices oesophageal [Unknown]
  - Sleep apnoea syndrome [Unknown]
  - Cholecystectomy [Unknown]
  - Amnesia [Not Recovered/Not Resolved]
  - Penis injury [Unknown]
  - Semen volume decreased [Unknown]
  - Peripheral swelling [Unknown]
  - Erosive duodenitis [Unknown]
  - Cognitive disorder [Not Recovered/Not Resolved]
  - Brain injury [Unknown]
  - Hyperlipidaemia [Unknown]
  - Varicose vein [Unknown]
  - Metabolic syndrome [Unknown]
  - Oesophagitis [Unknown]
  - Hormone level abnormal [Unknown]
  - Renal cyst [Unknown]
  - Dry mouth [Unknown]
  - Insomnia [Not Recovered/Not Resolved]

NARRATIVE: CASE EVENT DATE: 199804
